FAERS Safety Report 6817691-8 (Version None)
Quarter: 2010Q3

REPORT INFORMATION
  Report Type: 
  Country: None (occurrence: None)
  Receive Date: 20100706
  Receipt Date: 20100624
  Transmission Date: 20110219
  Serious: Yes (Other)
  Sender: FDA-Public Use
  Company Number: GB-PFIZER INC-2010078864

PATIENT
  Age: 8 Month
  Sex: Male

DRUGS (2)
  1. ZITHROMAX [Suspect]
     Indication: VIRAL INFECTION
     Dosage: 100 MG, 1X/DAY, 3X/WEEKLY
  2. CROMOGLICATE SODIUM [Concomitant]

REACTIONS (5)
  - COLITIS [None]
  - ECZEMA [None]
  - FOOD ALLERGY [None]
  - HAEMATOCHEZIA [None]
  - MUCOUS STOOLS [None]
